FAERS Safety Report 12410779 (Version 1)
Quarter: 2016Q2

REPORT INFORMATION
  Report Type: Spontaneous
  Country: US (occurrence: None)
  Receive Date: 20160526
  Receipt Date: 20160526
  Transmission Date: 20160815
  Serious: No
  Sender: FDA-Public Use
  Company Number: None

PATIENT
  Age: 42 Year
  Sex: Female

DRUGS (12)
  1. VENLAFAXINE [Concomitant]
     Active Substance: VENLAFAXINE HYDROCHLORIDE
  2. VITAMIN D2 [Concomitant]
     Active Substance: ERGOCALCIFEROL
  3. LETROZOLE. [Concomitant]
     Active Substance: LETROZOLE
  4. EFFEXOR XR [Concomitant]
     Active Substance: VENLAFAXINE HYDROCHLORIDE
  5. VALIUM [Concomitant]
     Active Substance: DIAZEPAM
  6. IMITREX [Concomitant]
     Active Substance: SUMATRIPTAN SUCCINATE
  7. LYRICA [Concomitant]
     Active Substance: PREGABALIN
  8. TAMOXIFEN [Concomitant]
     Active Substance: TAMOXIFEN
  9. IBRANCE [Suspect]
     Active Substance: PALBOCICLIB
     Indication: BREAST CANCER
     Dosage: QD FOR 21 DAYS OF 28
     Route: 048
     Dates: start: 201604, end: 20160505
  10. DIAZEPAM. [Concomitant]
     Active Substance: DIAZEPAM
  11. SUMATRIPTAN. [Concomitant]
     Active Substance: SUMATRIPTAN
  12. IBUPROFEN. [Concomitant]
     Active Substance: IBUPROFEN

REACTIONS (5)
  - Influenza like illness [None]
  - Cognitive disorder [None]
  - Nausea [None]
  - Fatigue [None]
  - Balance disorder [None]

NARRATIVE: CASE EVENT DATE: 20160501
